FAERS Safety Report 17727078 (Version 2)
Quarter: 2021Q4

REPORT INFORMATION
  Report Type: Report from Study
  Country: CN (occurrence: CN)
  Receive Date: 20200430
  Receipt Date: 20211108
  Transmission Date: 20220303
  Serious: Yes (Hospitalization)
  Sender: FDA-Public Use
  Company Number: CN-BRISTOL-MYERS SQUIBB COMPANY-BMS-2019-061239

PATIENT
  Age: 74 Year
  Sex: Male

DRUGS (3)
  1. NIVOLUMAB [Suspect]
     Active Substance: NIVOLUMAB
     Indication: Lung neoplasm malignant
     Dosage: 200 MILLIGRAM, Q3WK
     Route: 042
     Dates: start: 20180917, end: 201912
  2. NIVOLUMAB [Suspect]
     Active Substance: NIVOLUMAB
     Dosage: 200 MILLIGRAM, Q4WK
     Route: 041
     Dates: start: 20210707
  3. CISPLATIN [Concomitant]
     Active Substance: CISPLATIN
     Indication: Product used for unknown indication
     Dosage: UNK
     Route: 065

REACTIONS (9)
  - Pruritus [Unknown]
  - Chronic obstructive pulmonary disease [Unknown]
  - Nasopharyngitis [Unknown]
  - Rhinorrhoea [Unknown]
  - Oropharyngeal pain [Unknown]
  - Cough [Unknown]
  - Sneezing [Unknown]
  - Skin ulcer [Unknown]
  - Off label use [Unknown]

NARRATIVE: CASE EVENT DATE: 20190601
